FAERS Safety Report 7651466-5 (Version None)
Quarter: 2011Q3

REPORT INFORMATION
  Report Type: 
  Country: None (occurrence: None)
  Receive Date: 20110802
  Receipt Date: 20110726
  Transmission Date: 20111222
  Serious: Yes (Other)
  Sender: FDA-Public Use
  Company Number: PHHO2011ES08820

PATIENT
  Sex: Male
  Weight: 74.8 kg

DRUGS (6)
  1. HEPARIN SODIUM [Concomitant]
     Indication: PULMONARY EMBOLISM
     Dosage: UNK
     Dates: start: 20110519
  2. MEROPENEM [Concomitant]
     Indication: PYREXIA
     Dosage: 1G/12H
     Dates: start: 20110517
  3. HYDREA [Concomitant]
     Dosage: 500 G/24 H
     Dates: start: 20110516, end: 20110516
  4. CYTARABINE [Suspect]
     Indication: ACUTE MYELOID LEUKAEMIA
     Dosage: 15 MG, UNK
     Route: 042
     Dates: start: 20110519
  5. LBH589 [Suspect]
     Indication: ACUTE MYELOID LEUKAEMIA
     Dosage: NO TREATMENT RECEIVED
  6. IDARUBICIN HCL [Suspect]
     Indication: ACUTE MYELOID LEUKAEMIA
     Dosage: 187 MG, UNK
     Dates: start: 20110519

REACTIONS (1)
  - PULMONARY EMBOLISM [None]
